FAERS Safety Report 8503722-6 (Version None)
Quarter: 2012Q3

REPORT INFORMATION
  Report Type: 
  Country: None (occurrence: None)
  Receive Date: 20120711
  Receipt Date: 20120706
  Transmission Date: 20120928
  Serious: Yes (Other)
  Sender: FDA-Public Use
  Company Number: DE-PFIZER INC-2012111534

PATIENT
  Age: 45 Year
  Sex: Female
  Weight: 49 kg

DRUGS (10)
  1. BISOPROLOL [Concomitant]
     Indication: PERIPHERAL ARTERIAL OCCLUSIVE DISEASE
  2. BISOPROLOL [Concomitant]
     Indication: CORONARY ARTERY DISEASE
  3. ASPIRIN [Concomitant]
     Indication: ARTERIOSCLEROSIS
     Dosage: 100 MG, 1X/DAY (IN THE MORNING)
     Route: 048
  4. ASPIRIN [Concomitant]
     Indication: PERIPHERAL ARTERIAL OCCLUSIVE DISEASE
  5. TREDAPTIVE [Suspect]
     Indication: HYPERCHOLESTEROLAEMIA
     Dosage: 2 DF, 1X/DAY
     Route: 048
     Dates: start: 20110815, end: 20111005
  6. CLOPIDOGREL BISULFATE [Concomitant]
     Indication: ANGIOPLASTY
     Dosage: 75 MG, 1X/DAY (IN THE MORNING)
     Route: 048
  7. ATORVASTATIN CALCIUM [Suspect]
     Indication: HYPO HDL CHOLESTEROLAEMIA
     Dosage: 40 MG, 1X/DAY
     Route: 048
  8. BISOPROLOL [Concomitant]
     Indication: ARTERIOSCLEROSIS
     Dosage: 5 MG IN THE MORNING, 2.5 MG IN THE EVENING
     Route: 048
  9. ASPIRIN [Concomitant]
     Indication: CORONARY ARTERY DISEASE
  10. FOLAN [Concomitant]
     Dosage: 5 MG, 2X/DAY (IN THE MORNING AND EVENING)

REACTIONS (3)
  - DIARRHOEA [None]
  - BLOOD CREATINE PHOSPHOKINASE INCREASED [None]
  - FOLATE DEFICIENCY [None]
